FAERS Safety Report 14054908 (Version 1)
Quarter: 2017Q4

REPORT INFORMATION
  Report Type: Spontaneous
  Country: US (occurrence: US)
  Receive Date: 20171006
  Receipt Date: 20171006
  Transmission Date: 20180321
  Serious: No
  Sender: FDA-Public Use
  Company Number: US-JNJFOC-20170716081

PATIENT
  Age: 66 Year
  Sex: Male
  Weight: 83.92 kg

DRUGS (3)
  1. PROTOPIC [Concomitant]
     Active Substance: TACROLIMUS
     Indication: HAIR GROWTH ABNORMAL
     Route: 065
  2. MENS ROGAINE EXTRA STRENGTH [Suspect]
     Active Substance: MINOXIDIL
     Route: 061
  3. MENS ROGAINE EXTRA STRENGTH [Suspect]
     Active Substance: MINOXIDIL
     Indication: ALOPECIA
     Dosage: A LITTLE BIT ON HIS FINGERTIP
     Route: 061

REACTIONS (6)
  - Product use in unapproved indication [Not Recovered/Not Resolved]
  - Therapeutic response unexpected [Unknown]
  - Weight increased [Not Recovered/Not Resolved]
  - Incorrect dose administered [Not Recovered/Not Resolved]
  - Contraindicated drug prescribed [Not Recovered/Not Resolved]
  - Off label use [Not Recovered/Not Resolved]
